FAERS Safety Report 13655513 (Version 7)
Quarter: 2019Q4

REPORT INFORMATION
  Report Type: Spontaneous
  Country: US (occurrence: US)
  Receive Date: 20170615
  Receipt Date: 20191030
  Transmission Date: 20200122
  Serious: Yes (Hospitalization)
  Sender: FDA-Public Use
  Company Number: US-PFIZER INC-2017256388

PATIENT
  Age: 64 Year
  Sex: Female

DRUGS (11)
  1. VIT D [Concomitant]
     Active Substance: VITAMIN D NOS
     Dosage: UNK
  2. XGEVA [Concomitant]
     Active Substance: DENOSUMAB
     Dosage: UNK
  3. FASLODEX [Concomitant]
     Active Substance: FULVESTRANT
     Dosage: UNK
  4. CALCIUM [Concomitant]
     Active Substance: CALCIUM
     Dosage: UNK
  5. CURCUMIN [Concomitant]
     Active Substance: CURCUMIN
     Dosage: UNK
  6. LEXAPRO [Concomitant]
     Active Substance: ESCITALOPRAM OXALATE
     Dosage: UNK UNK, AS NEEDED
  7. IBRANCE [Suspect]
     Active Substance: PALBOCICLIB
     Dosage: UNK, CYCLIC (ON A 3 WK ON 2 WK OFF)
  8. IBRANCE [Suspect]
     Active Substance: PALBOCICLIB
     Indication: BREAST CANCER METASTATIC
     Dosage: UNK UNK, 1X/DAY
     Dates: start: 201611
  9. IBRANCE [Suspect]
     Active Substance: PALBOCICLIB
     Dosage: 100 MG, UNK
  10. BABY ASPIRIN [Concomitant]
     Active Substance: ASPIRIN
     Dosage: UNK
  11. AMLOZAAR [Concomitant]
     Dosage: UNK UNK, AS NEEDED

REACTIONS (12)
  - Malaise [Unknown]
  - Cognitive disorder [Unknown]
  - Onychoclasis [Unknown]
  - Oropharyngeal pain [Unknown]
  - Respiratory disorder [Recovered/Resolved]
  - Infection [Recovered/Resolved]
  - Arthralgia [Unknown]
  - Memory impairment [Unknown]
  - Back pain [Unknown]
  - Neutrophil count decreased [Unknown]
  - Alopecia [Unknown]
  - Chills [Unknown]

NARRATIVE: CASE EVENT DATE: 201701
